FAERS Safety Report 14348573 (Version 1)
Quarter: 2018Q1

REPORT INFORMATION
  Report Type: Spontaneous
  Country: US (occurrence: US)
  Receive Date: 20180103
  Receipt Date: 20180103
  Transmission Date: 20180509
  Serious: Yes (Other)
  Sender: FDA-Public Use
  Company Number: US-BEH-2017086337

PATIENT
  Age: 32 Year
  Sex: Female
  Weight: 68.27 kg

DRUGS (44)
  1. HIZENTRA [Suspect]
     Active Substance: HUMAN IMMUNOGLOBULIN G
     Dosage: UNK
     Route: 058
  2. FLAXSEED [Concomitant]
     Active Substance: FLAX SEED
  3. NEURONTIN [Concomitant]
     Active Substance: GABAPENTIN
  4. DAILY MULTIVITAMIN [Concomitant]
     Active Substance: VITAMINS
  5. FINACEA [Concomitant]
     Active Substance: AZELAIC ACID
  6. ELIQUIS [Concomitant]
     Active Substance: APIXABAN
  7. CYCLOBENZAPRINE. [Concomitant]
     Active Substance: CYCLOBENZAPRINE
  8. MIRALAX [Concomitant]
     Active Substance: POLYETHYLENE GLYCOL 3350
  9. RESTASIS [Concomitant]
     Active Substance: CYCLOSPORINE
  10. SOMA [Concomitant]
     Active Substance: CARISOPRODOL
  11. DOLO NEUROBION                     /00194601/ [Concomitant]
  12. NEXIUM [Concomitant]
     Active Substance: ESOMEPRAZOLE MAGNESIUM
  13. NASONEX [Concomitant]
     Active Substance: MOMETASONE FUROATE
  14. COLACE [Concomitant]
     Active Substance: DOCUSATE SODIUM
  15. CLONAZEPAM. [Concomitant]
     Active Substance: CLONAZEPAM
  16. AMITRIPTYLINE [Concomitant]
     Active Substance: AMITRIPTYLINE
  17. CALCIUM [Concomitant]
     Active Substance: CALCIUM
  18. DITROPAN [Concomitant]
     Active Substance: OXYBUTYNIN CHLORIDE
  19. HIZENTRA [Suspect]
     Active Substance: HUMAN IMMUNOGLOBULIN G
     Dosage: UNK
     Route: 058
  20. CIPRO [Concomitant]
     Active Substance: CIPROFLOXACIN HYDROCHLORIDE
  21. LYRICA [Concomitant]
     Active Substance: PREGABALIN
  22. ATIVAN [Concomitant]
     Active Substance: LORAZEPAM
  23. TIZANIDINE. [Concomitant]
     Active Substance: TIZANIDINE
  24. METAMUCIL [Concomitant]
     Active Substance: PLANTAGO SEED
  25. ADDERALL [Concomitant]
     Active Substance: AMPHETAMINE ASPARTATE\AMPHETAMINE SULFATE\DEXTROAMPHETAMINE SACCHARATE\DEXTROAMPHETAMINE SULFATE
  26. TRIMETHOPRIM. [Concomitant]
     Active Substance: TRIMETHOPRIM
  27. KEPPRA [Concomitant]
     Active Substance: LEVETIRACETAM
  28. ATORVASTATIN [Concomitant]
     Active Substance: ATORVASTATIN
  29. CYMBALTA [Concomitant]
     Active Substance: DULOXETINE HYDROCHLORIDE
  30. FORTEO [Concomitant]
     Active Substance: TERIPARATIDE
  31. CULTURELLE [Concomitant]
     Active Substance: LACTOBACILLUS RHAMNOSUS
  32. TOPAMAX [Concomitant]
     Active Substance: TOPIRAMATE
  33. HIPREX [Concomitant]
     Active Substance: METHENAMINE HIPPURATE
     Dosage: UNK
     Route: 065
  34. CRANBERRY                          /01512301/ [Concomitant]
     Active Substance: CRANBERRY
  35. CARBAMAZEPINE. [Concomitant]
     Active Substance: CARBAMAZEPINE
  36. ZOMIG [Concomitant]
     Active Substance: ZOLMITRIPTAN
  37. MYRBETRIQ [Concomitant]
     Active Substance: MIRABEGRON
  38. FOSAMAX [Concomitant]
     Active Substance: ALENDRONATE SODIUM
  39. B COMPLEX                          /00212701/ [Concomitant]
     Active Substance: NIACINAMIDE\PYRIDOXINE\RIBOFLAVIN\THIAMINE
  40. REGLAN [Concomitant]
     Active Substance: METOCLOPRAMIDE HYDROCHLORIDE
  41. DULCOLAX (BISACODYL) [Concomitant]
     Active Substance: BISACODYL
     Dosage: UNK
     Route: 065
  42. BACLOFEN. [Concomitant]
     Active Substance: BACLOFEN
  43. HIZENTRA [Suspect]
     Active Substance: HUMAN IMMUNOGLOBULIN G
     Indication: HYPOGAMMAGLOBULINAEMIA
     Dosage: 10 G, QW
     Route: 058
     Dates: start: 20111103
  44. VITAMIN D3 [Concomitant]
     Active Substance: CHOLECALCIFEROL

REACTIONS (5)
  - Dysphagia [Unknown]
  - Pain [Unknown]
  - Pruritus [Unknown]
  - Hyperaesthesia [Unknown]
  - Erythema [Unknown]
